FAERS Safety Report 8521204-2 (Version None)
Quarter: 2012Q3

REPORT INFORMATION
  Report Type: 
  Country: None (occurrence: None)
  Receive Date: 20120719
  Receipt Date: 20120716
  Transmission Date: 20120928
  Serious: Yes (Other)
  Sender: FDA-Public Use
  Company Number: US-PFIZER INC-2012172372

PATIENT
  Sex: Male

DRUGS (2)
  1. DILANTIN [Suspect]
  2. ARTHROTEC [Suspect]

REACTIONS (4)
  - PAIN IN EXTREMITY [None]
  - FALL [None]
  - UPPER LIMB FRACTURE [None]
  - INSOMNIA [None]
